FAERS Safety Report 7319382-6 (Version None)
Quarter: 2011Q1

REPORT INFORMATION
  Report Type: 
  Country: None (occurrence: None)
  Receive Date: 20110228
  Receipt Date: 20100309
  Transmission Date: 20110831
  Serious: No
  Sender: FDA-Public Use
  Company Number: A0847341A

PATIENT
  Age: 48 Year
  Sex: Female

DRUGS (4)
  1. COUMADIN [Concomitant]
  2. LAMICTAL [Suspect]
     Dosage: 50MG PER DAY
     Route: 048
     Dates: start: 20100222, end: 20100225
  3. DILANTIN [Concomitant]
  4. LAMOTRIGINE [Concomitant]
     Dosage: 25MG UNKNOWN
     Route: 048

REACTIONS (4)
  - LYMPHADENOPATHY [None]
  - VOMITING [None]
  - NAUSEA [None]
  - RASH [None]
